FAERS Safety Report 7055467-X (Version None)
Quarter: 2010Q4

REPORT INFORMATION
  Report Type: 
  Country: None (occurrence: None)
  Receive Date: 20101021
  Receipt Date: 20101014
  Transmission Date: 20110411
  Serious: Yes (Other)
  Sender: FDA-Public Use
  Company Number: US-SANOFI-AVENTIS-2010SA063339

PATIENT
  Age: 89 Year
  Sex: Female

DRUGS (2)
  1. MULTAQ [Suspect]
     Route: 048
     Dates: start: 20100917
  2. MULTAQ [Suspect]
     Route: 048

REACTIONS (1)
  - ATRIAL FIBRILLATION [None]
